FAERS Safety Report 13307854 (Version 1)
Quarter: 2017Q1

REPORT INFORMATION
  Report Type: Spontaneous
  Country: US (occurrence: US)
  Receive Date: 20170308
  Receipt Date: 20170308
  Transmission Date: 20170428
  Serious: No
  Sender: FDA-Public Use
  Company Number: US-ACTELION-A-US2017-150676

PATIENT
  Age: 88 Year
  Sex: Female

DRUGS (1)
  1. VALCHLOR [Suspect]
     Active Substance: MECHLORETHAMINE
     Indication: MYCOSIS FUNGOIDES
     Dosage: UNK
     Route: 061
     Dates: start: 20161202

REACTIONS (4)
  - Application site vesicles [Recovering/Resolving]
  - Application site discharge [Recovering/Resolving]
  - Application site reaction [Recovering/Resolving]
  - Application site erythema [Recovering/Resolving]
